FAERS Safety Report 8854122 (Version 1)
Quarter: 2012Q4

REPORT INFORMATION
  Report Type: 
  Country: US (occurrence: US)
  Receive Date: 20121022
  Receipt Date: 20121022
  Transmission Date: 20130627
  Serious: No
  Sender: FDA-Public Use
  Company Number: US-PFIZER INC-2012262362

PATIENT
  Age: 54 Year
  Sex: Male
  Weight: 113.38 kg

DRUGS (5)
  1. ZOLOFT [Suspect]
     Indication: BIPOLAR DISORDER
     Dosage: 100 mg, 2x/day
     Route: 048
     Dates: end: 2011
  2. AMLODIPINE [Concomitant]
     Indication: HYPERTENSION
     Dosage: 5 mg, 1x/day
  3. ATENOLOL [Concomitant]
     Indication: HYPERTENSION
     Dosage: 50 mg, 1x/day
  4. FINASTERIDE [Concomitant]
     Indication: PROSTATOMEGALY
     Dosage: 5 mg, 1x/day
  5. ATORVASTATIN [Concomitant]
     Indication: BLOOD CHOLESTEROL INCREASED
     Dosage: 80 mg, 1x/day

REACTIONS (2)
  - Blood triglycerides increased [Unknown]
  - High density lipoprotein decreased [Unknown]
